FAERS Safety Report 16006202 (Version 3)
Quarter: 2019Q1

REPORT INFORMATION
  Report Type: Spontaneous
  Country: CA (occurrence: CA)
  Receive Date: 20190226
  Receipt Date: 20190325
  Transmission Date: 20190418
  Serious: Yes (Other)
  Sender: FDA-Public Use
  Company Number: CA-PFIZER INC-2019081981

PATIENT
  Age: 60 Year
  Sex: Female

DRUGS (6)
  1. METHOTREXATE SODIUM. [Suspect]
     Active Substance: METHOTREXATE SODIUM
     Dosage: 20 MG, WEEKLY
     Route: 048
  2. FOLIC ACID. [Concomitant]
     Active Substance: FOLIC ACID
     Dosage: UNK
  3. METHOTREXATE SODIUM. [Suspect]
     Active Substance: METHOTREXATE SODIUM
     Dosage: 10 MG, WEEKLY
     Route: 048
  4. PREDNISONE. [Concomitant]
     Active Substance: PREDNISONE
     Dosage: UNK UNK, AS NEEDED
  5. HYDROXYCHLOROQUINE [Concomitant]
     Active Substance: HYDROXYCHLOROQUINE
     Dosage: 400 DIE
  6. METHOTREXATE SODIUM. [Suspect]
     Active Substance: METHOTREXATE SODIUM
     Dosage: 12.5 MG, WEEKLY
     Route: 048

REACTIONS (5)
  - Cataract [Unknown]
  - Headache [Not Recovered/Not Resolved]
  - Influenza [Unknown]
  - Cough [Unknown]
  - Nausea [Not Recovered/Not Resolved]
